FAERS Safety Report 24298739 (Version 1)
Quarter: 2024Q3

REPORT INFORMATION
  Report Type: Report from Study
  Country: CA (occurrence: CA)
  Receive Date: 20240909
  Receipt Date: 20240909
  Transmission Date: 20241016
  Serious: Yes (Other)
  Sender: UCB
  Company Number: CA-UCBSA-2024020302

PATIENT
  Sex: Female

DRUGS (1)
  1. CERTOLIZUMAB PEGOL [Suspect]
     Active Substance: CERTOLIZUMAB PEGOL
     Indication: Psoriasis
     Dosage: 400 MILLIGRAM, EV 2 WEEKS(QOW)
     Route: 058
     Dates: start: 20230324, end: 2024

REACTIONS (4)
  - Oophoritis [Unknown]
  - Illness [Unknown]
  - Vomiting [Unknown]
  - Psoriasis [Unknown]

NARRATIVE: CASE EVENT DATE: 20240101
